FAERS Safety Report 8109192-4 (Version None)
Quarter: 2012Q1

REPORT INFORMATION
  Report Type: 
  Country: None (occurrence: None)
  Receive Date: 20120202
  Receipt Date: 20120104
  Transmission Date: 20120608
  Serious: No
  Sender: FDA-Public Use
  Company Number: US-AMGEN-USASP2012000499

PATIENT
  Age: 53 Year
  Sex: Female

DRUGS (1)
  1. ENBREL [Suspect]
     Indication: RHEUMATOID ARTHRITIS
     Dosage: 50 MG, QWK
     Dates: start: 20090101, end: 20111222

REACTIONS (9)
  - ARTHRALGIA [None]
  - JOINT SWELLING [None]
  - GAIT DISTURBANCE [None]
  - HYPOKINESIA [None]
  - INJECTION SITE PAIN [None]
  - SKIN DISCOLOURATION [None]
  - WALKING AID USER [None]
  - PAIN IN EXTREMITY [None]
  - PAIN [None]
